FAERS Safety Report 12534859 (Version 1)
Quarter: 2016Q3

REPORT INFORMATION
  Report Type: Spontaneous
  Country: US (occurrence: None)
  Receive Date: 20160706
  Receipt Date: 20160706
  Transmission Date: 20161109
  Serious: Yes (Death, Hospitalization)
  Sender: FDA-Public Use
  Company Number: None

PATIENT
  Age: 4 Year
  Sex: Male
  Weight: 20.9 kg

DRUGS (5)
  1. METHOTREXATE. [Suspect]
     Active Substance: METHOTREXATE
     Dates: end: 20160617
  2. DEXAMETHASONE. [Suspect]
     Active Substance: DEXAMETHASONE
     Dates: end: 20160629
  3. ONCASPAR [Suspect]
     Active Substance: PEGASPARGASE
     Dates: end: 20160614
  4. CYTARABINE. [Suspect]
     Active Substance: CYTARABINE
     Dates: end: 20160610
  5. VINCRISTINE SULFATE. [Suspect]
     Active Substance: VINCRISTINE SULFATE
     Dates: end: 20160618

REACTIONS (6)
  - Tonsillar disorder [None]
  - Pupil fixed [None]
  - Escherichia sepsis [None]
  - Septic shock [None]
  - Hypoxia [None]
  - Ischaemia [None]

NARRATIVE: CASE EVENT DATE: 20160622
